FAERS Safety Report 23344932 (Version 2)
Quarter: 2024Q3

REPORT INFORMATION
  Report Type: Spontaneous
  Country: AR (occurrence: AR)
  Receive Date: 20231228
  Receipt Date: 20240729
  Transmission Date: 20241017
  Serious: Yes (Other)
  Sender: GLAXOSMITHKLINE
  Company Number: AR-GLAXOSMITHKLINE-AR2023AMR179660

PATIENT

DRUGS (2)
  1. BENLYSTA [Suspect]
     Active Substance: BELIMUMAB
     Indication: Systemic lupus erythematosus
     Dosage: UNK, 120MG-400MG
     Route: 042
     Dates: start: 202202
  2. BENLYSTA [Suspect]
     Active Substance: BELIMUMAB
     Dosage: 520 MG
     Route: 042
     Dates: start: 20220218, end: 20240212

REACTIONS (7)
  - Neurogenic shock [Unknown]
  - Spinal fracture [Not Recovered/Not Resolved]
  - Immobile [Recovering/Resolving]
  - Gait disturbance [Recovering/Resolving]
  - Bedridden [Recovering/Resolving]
  - Spinal disorder [Unknown]
  - Condition aggravated [Unknown]

NARRATIVE: CASE EVENT DATE: 20230801
